FAERS Safety Report 8965117 (Version 1)
Quarter: 2012Q4

REPORT INFORMATION
  Report Type: 
  Country: IT (occurrence: IT)
  Receive Date: 20121214
  Receipt Date: 20121214
  Transmission Date: 20130627
  Serious: Yes (Death, Life-Threatening)
  Sender: FDA-Public Use
  Company Number: IT-ASTRAZENECA-2012SE90518

PATIENT
  Age: 27515 Day
  Sex: Male

DRUGS (10)
  1. BRILIQUE [Suspect]
     Indication: ANGINA UNSTABLE
     Route: 048
     Dates: start: 20121126, end: 20121128
  2. ASPIRIN [Concomitant]
     Route: 048
  3. COUMADIN [Concomitant]
     Indication: ATRIAL FIBRILLATION
  4. HEPARIN [Concomitant]
     Indication: CORONARY ANGIOPLASTY
  5. COVERSYL [Concomitant]
     Indication: ATRIAL FIBRILLATION
  6. CONGESCOR [Concomitant]
     Indication: ATRIAL FIBRILLATION
  7. VITAMIN K [Concomitant]
     Dosage: 10 MG, IN MORNING
     Route: 042
  8. KONAKION (PHYTOMENADIONE) [Concomitant]
     Route: 048
  9. KONAKION (PHYTOMENADIONE) [Concomitant]
     Route: 065
  10. CARDIOASPIRIN [Concomitant]

REACTIONS (3)
  - Cerebral haemorrhage [Fatal]
  - Coma [Unknown]
  - Malignant hypertension [Unknown]
